FAERS Safety Report 8437241-2 (Version None)
Quarter: 2012Q2

REPORT INFORMATION
  Report Type: 
  Country: None (occurrence: None)
  Receive Date: 20120614
  Receipt Date: 20120229
  Transmission Date: 20120825
  Serious: No
  Sender: FDA-Public Use
  Company Number: US-AMGEN-USASP2011016762

PATIENT
  Age: 61 Year
  Sex: Female
  Weight: 45.079 kg

DRUGS (6)
  1. ZOLOFT [Concomitant]
     Dosage: 50 MG, UNK
     Dates: start: 20101012
  2. CELEBREX [Concomitant]
     Dosage: 200 MG, UNK
     Dates: start: 20060815
  3. ATIVAN [Concomitant]
     Dosage: 0.5 MG, UNK
     Dates: start: 20101203
  4. PROLIA [Suspect]
     Indication: OSTEOPOROSIS POSTMENOPAUSAL
     Dosage: 60 MG, Q6MO
     Dates: start: 20101118
  5. ASPIRIN [Concomitant]
     Dosage: 81 MG, UNK
     Dates: start: 20090723
  6. PROZAC [Concomitant]
     Dosage: 20 MG, UNK
     Dates: start: 20060815, end: 20101118

REACTIONS (2)
  - ALOPECIA [None]
  - BACK PAIN [None]
